FAERS Safety Report 8264806-3 (Version None)
Quarter: 2012Q2

REPORT INFORMATION
  Report Type: 
  Country: None (occurrence: None)
  Receive Date: 20120406
  Receipt Date: 20120329
  Transmission Date: 20120825
  Serious: Yes (Other)
  Sender: FDA-Public Use
  Company Number: JP-ASTELLAS-2012JP002765

PATIENT
  Age: 75 Year
  Sex: Female

DRUGS (4)
  1. FAMOTIDINE [Concomitant]
     Dosage: 20 MG, UNKNOWN/D
     Route: 048
     Dates: start: 20091207
  2. VESICARE [Suspect]
     Indication: HYPERTONIC BLADDER
     Dosage: 5 MG, UNKNOWN/D
     Route: 048
     Dates: start: 20091207, end: 20111226
  3. VESICARE [Suspect]
     Dosage: 10 MG, UNKNOWN/D
     Route: 048
     Dates: start: 20111227, end: 20120327
  4. PLAVIX [Concomitant]
     Dosage: 75 MG, UNKNOWN/D
     Route: 048
     Dates: start: 20091207

REACTIONS (2)
  - HAND FRACTURE [None]
  - DIZZINESS [None]
